FAERS Safety Report 21362007 (Version 2)
Quarter: 2023Q1

REPORT INFORMATION
  Report Type: Report from Study
  Country: JP (occurrence: JP)
  Receive Date: 20220922
  Receipt Date: 20230117
  Transmission Date: 20230418
  Serious: Yes (Other)
  Sender: FDA-Public Use
  Company Number: JP-JNJFOC-20220940775

PATIENT
  Age: 91 Year
  Sex: Female

DRUGS (1)
  1. SIMPONI [Suspect]
     Active Substance: GOLIMUMAB
     Indication: Rheumatoid arthritis
     Dosage: DOSE UNKNOWN
     Route: 058
     Dates: start: 20171206, end: 20180110

REACTIONS (1)
  - Hallucination [Unknown]
